FAERS Safety Report 8544556-6 (Version None)
Quarter: 2012Q3

REPORT INFORMATION
  Report Type: 
  Country: None (occurrence: None)
  Receive Date: 20120727
  Receipt Date: 20070831
  Transmission Date: 20120928
  Serious: Yes (Death)
  Sender: FDA-Public Use
  Company Number: CO-PFIZER INC-2012181493

PATIENT
  Age: 57 Year
  Sex: Female

DRUGS (3)
  1. ACETYLSALICYLIC ACID [Concomitant]
     Dosage: 100 MG, 1X/DAY
  2. LIPITOR [Suspect]
     Indication: DYSLIPIDAEMIA
     Dosage: 20 MG, 1X/DAY
  3. VERAPAMIL HYDROCHLORIDE [Concomitant]
     Dosage: 120 MG, 2X/DAY

REACTIONS (2)
  - DEATH [None]
  - CHEST PAIN [None]
